FAERS Safety Report 15027696 (Version 3)
Quarter: 2019Q2

REPORT INFORMATION
  Report Type: Spontaneous
  Country: US (occurrence: US)
  Receive Date: 20180619
  Receipt Date: 20190429
  Transmission Date: 20190711
  Serious: Yes (Death, Other)
  Sender: FDA-Public Use
  Company Number: US-PFIZER INC-2018243746

PATIENT
  Age: 75 Year
  Sex: Female
  Weight: 116 kg

DRUGS (3)
  1. XELJANZ [Suspect]
     Active Substance: TOFACITINIB CITRATE
     Dosage: 5 MG, 1X/DAY
     Route: 048
     Dates: start: 20180322
  2. XELJANZ [Suspect]
     Active Substance: TOFACITINIB CITRATE
     Indication: RHEUMATOID ARTHRITIS
     Dosage: UNK
     Route: 048
     Dates: start: 201703
  3. PREDNISONE. [Concomitant]
     Active Substance: PREDNISONE
     Indication: PAIN
     Dosage: 2.5 MG TABLET ONCE A DAY BY MOUTH
     Route: 048
     Dates: start: 20180323

REACTIONS (8)
  - Death [Fatal]
  - Incorrect dose administered [Unknown]
  - Condition aggravated [Unknown]
  - Back pain [Not Recovered/Not Resolved]
  - Intentional product misuse [Unknown]
  - Renal failure [Unknown]
  - Spinal pain [Not Recovered/Not Resolved]
  - Arthralgia [Not Recovered/Not Resolved]

NARRATIVE: CASE EVENT DATE: 201803
